FAERS Safety Report 15751428 (Version 1)
Quarter: 2018Q4

REPORT INFORMATION
  Report Type: Spontaneous
  Country: US (occurrence: US)
  Receive Date: 20181221
  Receipt Date: 20181221
  Transmission Date: 20190205
  Serious: No
  Sender: FDA-Public Use
  Company Number: US-GLAXOSMITHKLINE-US2018229291

PATIENT

DRUGS (1)
  1. FLONASE SENSIMIST ALLERGY RELIEF [Suspect]
     Active Substance: FLUTICASONE FUROATE
     Indication: HYPERSENSITIVITY
     Dosage: UNK

REACTIONS (7)
  - Dyspnoea [Unknown]
  - Adverse drug reaction [Unknown]
  - Urticaria [Recovered/Resolved]
  - Pruritus [Unknown]
  - Pain [Unknown]
  - Wheezing [Recovered/Resolved]
  - Rash [Recovered/Resolved]
